FAERS Safety Report 25076906 (Version 2)
Quarter: 2025Q1

REPORT INFORMATION
  Report Type: Spontaneous
  Country: DE (occurrence: DE)
  Receive Date: 20250314
  Receipt Date: 20250328
  Transmission Date: 20250408
  Serious: Yes (Other)
  Sender: ORGANON
  Company Number: DE-ABBVIE-6166635

PATIENT
  Age: 66 Year

DRUGS (5)
  1. DESLORATADINE [Suspect]
     Active Substance: DESLORATADINE
     Indication: Dermatitis atopic
     Dosage: UNK UNK, QD
     Route: 065
  2. DESLORATADINE [Suspect]
     Active Substance: DESLORATADINE
     Dosage: UNK UNK, BID
     Route: 065
     Dates: end: 202302
  3. RINVOQ [Suspect]
     Active Substance: UPADACITINIB
     Indication: Dermatitis atopic
     Route: 048
     Dates: start: 20220407
  4. OMALIZUMAB [Suspect]
     Active Substance: OMALIZUMAB
     Indication: Dermatitis atopic
     Route: 065
     Dates: start: 2023
  5. OMALIZUMAB [Suspect]
     Active Substance: OMALIZUMAB
     Route: 065
     Dates: end: 202302

REACTIONS (8)
  - Loss of consciousness [Unknown]
  - Paraesthesia [Unknown]
  - Discomfort [Unknown]
  - Dizziness [Unknown]
  - Cardiovascular insufficiency [Unknown]
  - Cold urticaria [Unknown]
  - Syncope [Unknown]
  - Drug ineffective [Unknown]

NARRATIVE: CASE EVENT DATE: 20220101
